FAERS Safety Report 20551012 (Version 3)
Quarter: 2023Q2

REPORT INFORMATION
  Report Type: Spontaneous
  Country: US (occurrence: None)
  Receive Date: 20220304
  Receipt Date: 20230511
  Transmission Date: 20230721
  Serious: Yes (Death, Other)
  Sender: FDA-Public Use
  Company Number: US-ROCHE-3041073

PATIENT
  Age: 63 Year
  Sex: Female
  Weight: 99 kg

DRUGS (1)
  1. OCREVUS [Suspect]
     Active Substance: OCRELIZUMAB
     Indication: Multiple sclerosis
     Route: 041
     Dates: start: 20191230, end: 20210802

REACTIONS (3)
  - Breast cancer [Unknown]
  - COVID-19 pneumonia [Fatal]
  - Respiratory failure [Fatal]

NARRATIVE: CASE EVENT DATE: 20211121
